FAERS Safety Report 4320603-2 (Version None)
Quarter: 2004Q1

REPORT INFORMATION
  Report Type: 
  Country: None (occurrence: None)
  Receive Date: 20040311
  Receipt Date: 20040220
  Transmission Date: 20041129
  Serious: Yes (Death)
  Sender: FDA-Public Use
  Company Number: 235470

PATIENT
  Age: 72 Year
  Sex: Male

DRUGS (2)
  1. NOVOSEVEN [Suspect]
     Indication: HAEMORRHAGE
     Dosage: 90 MCG/KG- SINGLE DOSE, INTRAVENOUS
     Route: 042
  2. BLOOD PRODUCTS NOS [Concomitant]

REACTIONS (1)
  - DEATH [None]
